FAERS Safety Report 24150716 (Version 1)
Quarter: 2024Q3

REPORT INFORMATION
  Report Type: Report from Study
  Country: US (occurrence: US)
  Receive Date: 20240730
  Receipt Date: 20240730
  Transmission Date: 20241017
  Serious: Yes (Other)
  Sender: ROCHE
  Company Number: US-ROCHE-10000033747

PATIENT
  Age: 71 Year
  Sex: Female

DRUGS (1)
  1. ALECENSA [Suspect]
     Active Substance: ALECTINIB HYDROCHLORIDE
     Indication: Lung neoplasm malignant
     Dosage: TAKE 4 CAPSULES (600 MG TOTAL) BY MOUTH 2 (TWO) TIMES A DAY. TAKE WITH FOOD.
     Route: 048

REACTIONS (3)
  - Fall [Unknown]
  - Device breakage [Unknown]
  - Abdominal injury [Unknown]
